FAERS Safety Report 19760602 (Version 1)
Quarter: 2021Q3

REPORT INFORMATION
  Report Type: Spontaneous
  Country: US (occurrence: US)
  Receive Date: 20210825
  Receipt Date: 20210825
  Transmission Date: 20211014
  Serious: Yes (Hospitalization)
  Sender: FDA-Public Use
  Company Number: None

PATIENT
  Age: 51 Year
  Sex: Female

DRUGS (16)
  1. DIMETHYL FUM 240MG CAP [Suspect]
     Active Substance: DIMETHYL FUMARATE
     Indication: MULTIPLE SCLEROSIS
     Route: 048
     Dates: start: 20201015
  2. LEVOTHYROXIN [Concomitant]
     Active Substance: LEVOTHYROXINE
  3. LISINOPRIL. [Concomitant]
     Active Substance: LISINOPRIL
  4. XELJANZ XR [Suspect]
     Active Substance: TOFACITINIB CITRATE
     Indication: RHEUMATOID ARTHRITIS
     Route: 048
     Dates: start: 20161026
  5. CARVEDILOL. [Concomitant]
     Active Substance: CARVEDILOL
  6. FUROSEMIDE. [Concomitant]
     Active Substance: FUROSEMIDE
  7. TOPIRAMATE. [Concomitant]
     Active Substance: TOPIRAMATE
  8. VANCOMYC/DEX [Concomitant]
  9. DEXTROAMPHET SACCHARAT, AMPHET ASPARTATE, DEXTROAMPHET SULFATE AND AMPHET SULFAT [Concomitant]
     Active Substance: AMPHETAMINE ASPARTATE\AMPHETAMINE SULFATE\DEXTROAMPHETAMINE SACCHARATE\DEXTROAMPHETAMINE SULFATE
  10. MEDROXYPR AC [Concomitant]
  11. DESVENLAFAX ER [Concomitant]
  12. LINZESS [Concomitant]
     Active Substance: LINACLOTIDE
  13. CIPROFLOXACN [Concomitant]
     Active Substance: CIPROFLOXACIN
  14. METHADONE [Concomitant]
     Active Substance: METHADONE HYDROCHLORIDE
  15. LORAZEPAM. [Concomitant]
     Active Substance: LORAZEPAM
  16. OXYCODONE AND ACETAMINOPHEN [Concomitant]
     Active Substance: ACETAMINOPHEN\OXYCODONE HYDROCHLORIDE

REACTIONS (2)
  - Cardiac disorder [None]
  - Therapy interrupted [None]

NARRATIVE: CASE EVENT DATE: 202101
